FAERS Safety Report 21141002 (Version 2)
Quarter: 2022Q3

REPORT INFORMATION
  Report Type: Other
  Country: KR (occurrence: None)
  Receive Date: 20220728
  Receipt Date: 20220928
  Transmission Date: 20221027
  Serious: Yes (Death, Hospitalization)
  Sender: FDA-Public Use
  Company Number: KR-ROCHE-3124570

PATIENT
  Age: 64 Year
  Sex: Male

DRUGS (12)
  1. ATEZOLIZUMAB [Suspect]
     Active Substance: ATEZOLIZUMAB
     Indication: Small cell lung cancer
     Route: 065
     Dates: start: 20220303, end: 20220418
  2. ABSTRAL [Concomitant]
     Active Substance: FENTANYL CITRATE
     Dosage: 400 MCG
     Dates: start: 20220511, end: 20220522
  3. CODEINE [Concomitant]
     Active Substance: CODEINE
     Dosage: 15/FEB/2022
     Dates: start: 20220302, end: 20220510
  4. COZAAR [Concomitant]
     Active Substance: LOSARTAN POTASSIUM
     Dates: start: 20220407, end: 20220523
  5. DULACKHAN EASY [Concomitant]
     Dosage: 45 ML / PACK
     Dates: start: 20220316, end: 20220510
  6. ZOLPIDEM TARTRATE [Concomitant]
     Active Substance: ZOLPIDEM TARTRATE
     Dosage: 24/MAR/2022
     Dates: start: 20220304, end: 20220510
  7. ERDOIN [Concomitant]
     Dates: start: 20220216, end: 20220505
  8. MOSAPRIDE CITRATE [Concomitant]
     Active Substance: MOSAPRIDE CITRATE
     Dates: start: 20220216, end: 20220505
  9. LEBROCOL [Concomitant]
     Dates: start: 20220216, end: 20220505
  10. LEXAPRO [Concomitant]
     Active Substance: ESCITALOPRAM OXALATE
     Dates: start: 20220407, end: 20220505
  11. MAGNESIUM HYDROXIDE [Concomitant]
     Active Substance: MAGNESIUM HYDROXIDE
     Dates: start: 20220407, end: 20220505
  12. ULTRACET [Concomitant]
     Active Substance: ACETAMINOPHEN\TRAMADOL HYDROCHLORIDE
     Dosage: 3 / TAB
     Dates: start: 20220217, end: 20220505

REACTIONS (4)
  - Pleural effusion [Not Recovered/Not Resolved]
  - Pneumonia [Fatal]
  - Pancreatic carcinoma [Not Recovered/Not Resolved]
  - Diarrhoea [Recovered/Resolved]

NARRATIVE: CASE EVENT DATE: 20220503
